FAERS Safety Report 8101192-3 (Version None)
Quarter: 2012Q1

REPORT INFORMATION
  Report Type: 
  Country: None (occurrence: None)
  Receive Date: 20120129
  Receipt Date: 20111012
  Transmission Date: 20120608
  Serious: No
  Sender: FDA-Public Use
  Company Number: US-ABBOTT-11P-163-0863989-00

PATIENT
  Sex: Female
  Weight: 115.77 kg

DRUGS (4)
  1. HUMIRA [Suspect]
     Indication: RHEUMATOID ARTHRITIS
     Dates: start: 20090101, end: 20110901
  2. XYZAL [Concomitant]
     Indication: SINUSITIS
  3. HUMIRA [Suspect]
     Dates: start: 20110901
  4. METHOTREXATE [Concomitant]
     Indication: PRODUCT USED FOR UNKNOWN INDICATION
     Dates: start: 20090101

REACTIONS (2)
  - TYPE 2 DIABETES MELLITUS [None]
  - ARTHRALGIA [None]
